FAERS Safety Report 17219756 (Version 3)
Quarter: 2020Q1

REPORT INFORMATION
  Report Type: Report from Study
  Country: US (occurrence: US)
  Receive Date: 20191231
  Receipt Date: 20200225
  Transmission Date: 20200409
  Serious: Yes (Hospitalization, Other)
  Sender: FDA-Public Use
  Company Number: US-BRISTOL-MYERS SQUIBB COMPANY-BMS-2019-112949

PATIENT
  Age: 67 Year
  Sex: Male
  Weight: 67.6 kg

DRUGS (4)
  1. COPANLISIB. [Suspect]
     Active Substance: COPANLISIB
     Indication: PRODUCT USED FOR UNKNOWN INDICATION
     Dosage: 180 MILLIGRAM
     Route: 042
     Dates: start: 20191113, end: 20191113
  2. VANCOMYCIN [Suspect]
     Active Substance: VANCOMYCIN
     Indication: SEPSIS
     Dosage: UNK
     Route: 065
  3. COPANLISIB. [Suspect]
     Active Substance: COPANLISIB
     Indication: COLON CANCER
     Dosage: 60 MILLIGRAM, QMO
     Route: 042
     Dates: start: 20191002
  4. NIVOLUMAB [Suspect]
     Active Substance: NIVOLUMAB
     Indication: COLON CANCER
     Dosage: 480 MILLIGRAM, QMO
     Route: 042
     Dates: start: 20191002, end: 20191030

REACTIONS (4)
  - Embolism [Recovering/Resolving]
  - Cerebrovascular accident [Recovering/Resolving]
  - Sepsis [Recovering/Resolving]
  - Hypoacusis [Recovering/Resolving]

NARRATIVE: CASE EVENT DATE: 20191113
